FAERS Safety Report 6648970-5 (Version None)
Quarter: 2010Q1

REPORT INFORMATION
  Report Type: 
  Country: None (occurrence: None)
  Receive Date: 20100324
  Receipt Date: 20100319
  Transmission Date: 20100710
  Serious: Yes (Hospitalization)
  Sender: FDA-Public Use
  Company Number: US-MERCK-1003USA02175

PATIENT
  Age: 63 Year
  Sex: Female

DRUGS (2)
  1. FOSAMAX [Suspect]
     Indication: OSTEOPOROSIS
     Route: 048
     Dates: start: 20000101, end: 20090101
  2. CALCIUM (UNSPECIFIED) [Concomitant]
     Route: 065

REACTIONS (3)
  - FALL [None]
  - FEMUR FRACTURE [None]
  - PAIN IN EXTREMITY [None]
